FAERS Safety Report 16583441 (Version 3)
Quarter: 2019Q4

REPORT INFORMATION
  Report Type: Spontaneous
  Country: US (occurrence: US)
  Receive Date: 20190717
  Receipt Date: 20191230
  Transmission Date: 20200122
  Serious: Yes (Other)
  Sender: FDA-Public Use
  Company Number: US-PFIZER INC-2019302643

PATIENT
  Age: 61 Year
  Sex: Female
  Weight: 107 kg

DRUGS (4)
  1. CALCITOL [Concomitant]
     Dosage: 25 MG, UNK
  2. XGEVA [Concomitant]
     Active Substance: DENOSUMAB
     Dosage: UNK, MONTHLY
     Dates: start: 201901
  3. FASLODEX [Concomitant]
     Active Substance: FULVESTRANT
     Dosage: UNK, MONTHLY
     Dates: start: 201901
  4. IBRANCE [Suspect]
     Active Substance: PALBOCICLIB
     Indication: BREAST CANCER STAGE IV
     Dosage: 125 MG, CYCLIC (21 DAYS OUT OF MONTH)
     Dates: start: 201901

REACTIONS (10)
  - Eye haemorrhage [Recovered/Resolved]
  - Macular oedema [Unknown]
  - Musculoskeletal chest pain [Not Recovered/Not Resolved]
  - Memory impairment [Not Recovered/Not Resolved]
  - Gait inability [Unknown]
  - Cataract [Unknown]
  - Arthralgia [Not Recovered/Not Resolved]
  - Vision blurred [Not Recovered/Not Resolved]
  - Back pain [Not Recovered/Not Resolved]
  - Weight bearing difficulty [Unknown]

NARRATIVE: CASE EVENT DATE: 2019
